FAERS Safety Report 16487445 (Version 1)
Quarter: 2019Q3

REPORT INFORMATION
  Report Type: Spontaneous
  Country: US (occurrence: US)
  Receive Date: 20190626
  Receipt Date: 20190626
  Transmission Date: 20191004
  Serious: No
  Sender: FDA-Public Use
  Company Number: None

PATIENT
  Sex: Female

DRUGS (3)
  1. VERZENIO [Suspect]
     Active Substance: ABEMACICLIB
     Indication: THROMBOSIS
     Dosage: ?          OTHER FREQUENCY:TWICE DAILY;?
     Route: 048
  2. TRAMADOL. [Concomitant]
     Active Substance: TRAMADOL
  3. VERZENIO [Suspect]
     Active Substance: ABEMACICLIB
     Indication: EMBOLISM
     Dosage: ?          OTHER FREQUENCY:TWICE DAILY;?
     Route: 048

REACTIONS (1)
  - Disease progression [None]
